FAERS Safety Report 4627201-1 (Version None)
Quarter: 2005Q1

REPORT INFORMATION
  Report Type: 
  Country: None (occurrence: None)
  Receive Date: 20050330
  Receipt Date: 20030320
  Transmission Date: 20050727
  Serious: No
  Sender: FDA-Public Use
  Company Number: 5043

PATIENT
  Age: 18 Year
  Sex: Male

DRUGS (6)
  1. MIDAZOLAM HCL [Suspect]
     Dosage: 2 MG ONCE IV
     Route: 042
  2. LIGNOCAINE [Suspect]
     Dosage: TP
     Route: 061
  3. COPHENYLCAINE [Suspect]
     Dosage: TP
     Route: 061
  4. COCAINE [Suspect]
  5. PROPOFOL [Concomitant]
  6. ROCURONIUM BROMIDE [Concomitant]

REACTIONS (3)
  - ACUTE PULMONARY OEDEMA [None]
  - ELECTROCARDIOGRAM ST SEGMENT ELEVATION [None]
  - HYPERTENSION [None]
